FAERS Safety Report 5910945-9 (Version None)
Quarter: 2008Q4

REPORT INFORMATION
  Report Type: 
  Country: None (occurrence: None)
  Receive Date: 20081007
  Receipt Date: 20080717
  Transmission Date: 20090506
  Serious: Yes (Other)
  Sender: FDA-Public Use
  Company Number: US-ASTRAZENECA-2008UW14409

PATIENT
  Age: 71 Year
  Sex: Female
  Weight: 77.1 kg

DRUGS (6)
  1. ARIMIDEX [Suspect]
     Indication: BREAST CANCER
     Route: 048
     Dates: start: 20030801
  2. FOSAMAX [Concomitant]
  3. CRESTOR [Concomitant]
  4. VESICARE [Concomitant]
  5. AZOR [Concomitant]
  6. NEXIUM [Concomitant]

REACTIONS (4)
  - ARTHRALGIA [None]
  - CATARACT [None]
  - CERVICAL VERTEBRAL FRACTURE [None]
  - NIGHT SWEATS [None]
